FAERS Safety Report 5763516-1 (Version None)
Quarter: 2008Q2

REPORT INFORMATION
  Report Type: 
  Country: None (occurrence: None)
  Receive Date: 20080610
  Receipt Date: 20080602
  Transmission Date: 20081010
  Serious: Yes (Life-Threatening)
  Sender: FDA-Public Use
  Company Number: FR-JNJFOC-20080600923

PATIENT
  Age: 69 Year
  Sex: Female

DRUGS (3)
  1. REOPRO [Suspect]
     Indication: THROMBOSIS PROPHYLAXIS
  2. HEPARIN [Concomitant]
  3. HEPARIN [Concomitant]
     Indication: THROMBOSIS PROPHYLAXIS

REACTIONS (2)
  - CARDIOGENIC SHOCK [None]
  - THROMBOCYTOPENIA [None]
